FAERS Safety Report 17542454 (Version 2)
Quarter: 2020Q1

REPORT INFORMATION
  Report Type: Report from Study
  Country: US (occurrence: US)
  Receive Date: 20200314
  Receipt Date: 20200326
  Transmission Date: 20200409
  Serious: Yes (Death, Hospitalization)
  Sender: FDA-Public Use
  Company Number: US-ACTELION-A-NJ2019-192072

PATIENT
  Age: 82 Year
  Sex: Female
  Weight: 38.1 kg

DRUGS (6)
  1. LETAIRIS [Concomitant]
     Active Substance: AMBRISENTAN
  2. UPTRAVI [Suspect]
     Active Substance: SELEXIPAG
     Dosage: 400 MCG, BID
     Route: 048
  3. UPTRAVI [Suspect]
     Active Substance: SELEXIPAG
     Dosage: 1200 MCG, BID
     Route: 048
  4. UPTRAVI [Suspect]
     Active Substance: SELEXIPAG
     Dosage: 600 MCG, BID
     Route: 048
  5. UPTRAVI [Suspect]
     Active Substance: SELEXIPAG
     Indication: PULMONARY ARTERIAL HYPERTENSION
     Dosage: 200 MCG, BID
     Route: 048
  6. ADCIRCA [Concomitant]
     Active Substance: TADALAFIL

REACTIONS (18)
  - Headache [Unknown]
  - Retching [Unknown]
  - Burnout syndrome [Unknown]
  - Diarrhoea [Unknown]
  - Dizziness [Unknown]
  - Peripheral swelling [Unknown]
  - Hypotension [Unknown]
  - Nausea [Unknown]
  - Joint swelling [Unknown]
  - Urinary tract infection [Unknown]
  - Death [Fatal]
  - Abdominal pain upper [Unknown]
  - Dyspnoea [Unknown]
  - Fall [Unknown]
  - Fatigue [Unknown]
  - Vision blurred [Unknown]
  - Frequent bowel movements [Unknown]
  - Fungal infection [Unknown]

NARRATIVE: CASE EVENT DATE: 20190911
